FAERS Safety Report 6524435-6 (Version None)
Quarter: 2010Q2

REPORT INFORMATION
  Report Type: 
  Country: None (occurrence: None)
  Receive Date: 20100104
  Receipt Date: 20091228
  Transmission Date: 20101027
  Serious: Yes (Other)
  Sender: FDA-Public Use
  Company Number: US-RB-000016-10

PATIENT
  Age: 69 Year
  Sex: Female

DRUGS (1)
  1. MUCINEX D [Suspect]
     Indication: SINUSITIS
     Route: 048
     Dates: end: 20091101

REACTIONS (5)
  - ERYTHEMA [None]
  - HEART RATE INCREASED [None]
  - INSOMNIA [None]
  - PSYCHOMOTOR HYPERACTIVITY [None]
  - WRONG TECHNIQUE IN DRUG USAGE PROCESS [None]
